FAERS Safety Report 24621501 (Version 2)
Quarter: 2024Q4

REPORT INFORMATION
  Report Type: Spontaneous
  Country: SE (occurrence: SE)
  Receive Date: 20241114
  Receipt Date: 20241118
  Transmission Date: 20250115
  Serious: Yes (Other)
  Sender: ELI LILLY AND COMPANY
  Company Number: SE-ELI_LILLY_AND_COMPANY-SE202411004026

PATIENT
  Age: 28 Year
  Sex: Female

DRUGS (12)
  1. FLUOXETINE HYDROCHLORIDE [Suspect]
     Active Substance: FLUOXETINE HYDROCHLORIDE
     Indication: Depression
     Dosage: 20 MG IN THE MORNING AND 20 MG AT LUNCH, CAPSULE, HARD
     Route: 065
  2. BETAMETHASONE DIPROPIONATE [Concomitant]
     Active Substance: BETAMETHASONE DIPROPIONATE
     Indication: Product used for unknown indication
     Dosage: LUBRICATE THE SCALP 2 TIMES/D 2 WEEKS THEN 1 TIME/D 2 WEEKS REPEAT IF NECESSARY
     Route: 050
     Dates: start: 20231106
  3. QUETIAPINE [Concomitant]
     Active Substance: QUETIAPINE
     Indication: Product used for unknown indication
     Dosage: 1-2 TABLETS IF NEEDED, MAXIMUM 2 TABLETS PER DAY
     Route: 065
     Dates: start: 20230714
  4. MELATONIN [Concomitant]
     Active Substance: MELATONIN
     Indication: Product used for unknown indication
     Dosage: 0.5 - 1 TABLET AT 19:00 AND 1 TABLET AT 21:00
     Route: 065
     Dates: start: 20240820
  5. PROPIOMAZINE [Concomitant]
     Active Substance: PROPIOMAZINE
     Indication: Product used for unknown indication
     Dosage: 1-2 TABLETS FOR THE NIGHT
     Route: 065
     Dates: start: 20230317
  6. MINIDERM DUO [Concomitant]
     Indication: Product used for unknown indication
     Dosage: 1 APPLICATION 2 TIMES DAILY
     Route: 065
     Dates: start: 20240424
  7. MOMETASONE FUROATE [Concomitant]
     Active Substance: MOMETASONE FUROATE
     Indication: Product used for unknown indication
     Dosage: 8 V SCHEDULE 1 APPLICATION DAILY FOR 2 V. AFTER THAT, EVERY OTHER DAY FOR 2 V.
     Route: 065
     Dates: start: 20240424
  8. DROSPIRENONE\ETHINYL ESTRADIOL [Concomitant]
     Active Substance: DROSPIRENONE\ETHINYL ESTRADIOL
     Indication: Product used for unknown indication
     Dosage: 1 DOSAGE FORM, DAILY
     Route: 065
     Dates: start: 20240817
  9. TREMFYA [Concomitant]
     Active Substance: GUSELKUMAB
     Indication: Product used for unknown indication
     Dosage: 1 EVERY 8V
     Route: 058
     Dates: start: 20240424
  10. BUSPIRONE HYDROCHLORIDE [Concomitant]
     Active Substance: BUSPIRONE HYDROCHLORIDE
     Indication: Product used for unknown indication
     Dosage: 10 MG, BID
     Route: 065
     Dates: start: 20240702
  11. UREA [Concomitant]
     Active Substance: UREA
     Indication: Product used for unknown indication
     Dosage: 1 APPLICATION 2 TIMES DAILY
     Route: 065
     Dates: start: 20220224
  12. PROPYLESS [Concomitant]
     Indication: Product used for unknown indication
     Dosage: 1 APPLICATION 2 TIMES DAILY
     Route: 065
     Dates: start: 20240531

REACTIONS (3)
  - Increased appetite [Unknown]
  - Fatigue [Recovered/Resolved]
  - Intermenstrual bleeding [Recovered/Resolved]

NARRATIVE: CASE EVENT DATE: 20241001
